FAERS Safety Report 16386001 (Version 1)
Quarter: 2019Q2

REPORT INFORMATION
  Report Type: Spontaneous
  Country: BE (occurrence: BE)
  Receive Date: 20190603
  Receipt Date: 20190603
  Transmission Date: 20190711
  Serious: Yes (Disabling)
  Sender: FDA-Public Use
  Company Number: PHHY2019BE109353

PATIENT
  Age: 59 Year
  Sex: Female

DRUGS (1)
  1. COSENTYX [Suspect]
     Active Substance: SECUKINUMAB
     Indication: PSORIASIS
     Dosage: 300 MG, QW (LOADING PHASE) (2?150 MG)
     Route: 065
     Dates: start: 20190315, end: 20190511

REACTIONS (7)
  - Skin burning sensation [Recovering/Resolving]
  - Blister [Recovering/Resolving]
  - Skin fissures [Not Recovered/Not Resolved]
  - Gait disturbance [Unknown]
  - Psoriasis [Recovering/Resolving]
  - Skin discolouration [Not Recovered/Not Resolved]
  - Peripheral swelling [Recovering/Resolving]

NARRATIVE: CASE EVENT DATE: 201904
